FAERS Safety Report 9358615 (Version 1)
Quarter: 2013Q2

REPORT INFORMATION
  Report Type: Spontaneous
  Country: AU (occurrence: AU)
  Receive Date: 20130620
  Receipt Date: 20130620
  Transmission Date: 20140414
  Serious: Yes (Hospitalization, Other)
  Sender: FDA-Public Use
  Company Number: PHHY2013AU061155

PATIENT
  Age: 20 Month
  Sex: Male
  Weight: 11 kg

DRUGS (3)
  1. LAMOTRIGINE [Suspect]
     Dosage: 100 MG, UNK
  2. PAROXETINE [Concomitant]
  3. BUPROPION [Concomitant]

REACTIONS (11)
  - Altered state of consciousness [Recovered/Resolved]
  - Flushing [Recovered/Resolved]
  - Anxiety [Recovered/Resolved]
  - Dyskinesia [Recovered/Resolved]
  - Feeling jittery [Recovered/Resolved]
  - Mydriasis [Recovered/Resolved]
  - Hypertonia [Recovered/Resolved]
  - Hyperreflexia [Recovered/Resolved]
  - Agitation [Recovered/Resolved]
  - Drug level increased [Unknown]
  - Accidental exposure to product [Unknown]
